FAERS Safety Report 15454424 (Version 3)
Quarter: 2019Q2

REPORT INFORMATION
  Report Type: Spontaneous
  Country: HR (occurrence: HR)
  Receive Date: 20181002
  Receipt Date: 20190529
  Transmission Date: 20190711
  Serious: Yes (Hospitalization, Other)
  Sender: FDA-Public Use
  Company Number: HR-AMGEN-HRVSP2018134969

PATIENT
  Age: 59 Year
  Sex: Female

DRUGS (21)
  1. VECTIBIX [Suspect]
     Active Substance: PANITUMUMAB
     Dosage: UNK (REGULAR IN 2.5-3 WEEK)
     Route: 065
     Dates: start: 2017, end: 2018
  2. 5 FU [Suspect]
     Active Substance: FLUOROURACIL
     Indication: RECTOSIGMOID CANCER METASTATIC
     Dosage: UNK
     Route: 065
     Dates: start: 201706, end: 2017
  3. 5 FU [Suspect]
     Active Substance: FLUOROURACIL
     Dosage: UNK (DOSE REDUCTION)
     Route: 065
     Dates: start: 2017, end: 2017
  4. VECTIBIX [Suspect]
     Active Substance: PANITUMUMAB
     Dosage: UNK
     Route: 065
     Dates: start: 201902, end: 201903
  5. FILGRASTIM [Suspect]
     Active Substance: FILGRASTIM
     Indication: PROPHYLAXIS
     Dosage: UNK
     Route: 065
     Dates: start: 2017
  6. FOLINIC ACID [Suspect]
     Active Substance: LEUCOVORIN
     Indication: RECTOSIGMOID CANCER METASTATIC
     Dosage: UNK
     Route: 065
     Dates: start: 201706, end: 2017
  7. VECTIBIX [Suspect]
     Active Substance: PANITUMUMAB
     Dosage: UNK
     Route: 065
     Dates: start: 201808, end: 201811
  8. FOLINIC ACID [Suspect]
     Active Substance: LEUCOVORIN
     Dosage: UNK (REGULAR IN 2.5-3 WEEK)
     Route: 065
     Dates: start: 2017, end: 2018
  9. VECTIBIX [Suspect]
     Active Substance: PANITUMUMAB
     Dosage: UNK (DOSE REDUCTION)
     Route: 065
     Dates: start: 2017, end: 2017
  10. 5 FU [Suspect]
     Active Substance: FLUOROURACIL
     Dosage: UNK
     Route: 065
     Dates: start: 201808, end: 201811
  11. IRINOTECAN [Suspect]
     Active Substance: IRINOTECAN
     Indication: RECTOSIGMOID CANCER METASTATIC
     Dosage: UNK
     Route: 065
     Dates: start: 201706, end: 2018
  12. VECTIBIX [Suspect]
     Active Substance: PANITUMUMAB
     Indication: RECTOSIGMOID CANCER METASTATIC
     Dosage: UNK
     Route: 065
     Dates: start: 201706, end: 2017
  13. FOLINIC ACID [Suspect]
     Active Substance: LEUCOVORIN
     Dosage: UNK (DOSE REDUCTION)
     Route: 065
     Dates: start: 2017, end: 2017
  14. IRINOTECAN [Suspect]
     Active Substance: IRINOTECAN
     Dosage: UNK
     Route: 065
     Dates: start: 201902, end: 201903
  15. CAPECITABINE. [Suspect]
     Active Substance: CAPECITABINE
     Indication: RECTOSIGMOID CANCER METASTATIC
     Dosage: UNK
     Route: 065
     Dates: start: 201806, end: 201806
  16. FOLINIC ACID [Suspect]
     Active Substance: LEUCOVORIN
     Dosage: UNK
     Route: 065
     Dates: start: 201808, end: 201811
  17. FOLINIC ACID [Suspect]
     Active Substance: LEUCOVORIN
     Dosage: UNK
     Route: 065
     Dates: start: 201902, end: 201903
  18. 5 FU [Suspect]
     Active Substance: FLUOROURACIL
     Dosage: UNK
     Route: 065
     Dates: start: 201902, end: 201903
  19. IRINOTECAN [Suspect]
     Active Substance: IRINOTECAN
     Dosage: UNK (REGULAR IN 2.5-3 WEEK)
     Route: 065
     Dates: start: 2017, end: 2018
  20. IRINOTECAN [Suspect]
     Active Substance: IRINOTECAN
     Dosage: UNK (DOSE REDUCTION)
     Route: 065
     Dates: start: 2017, end: 2017
  21. IRINOTECAN [Suspect]
     Active Substance: IRINOTECAN
     Dosage: UNK
     Route: 065
     Dates: start: 201808, end: 201811

REACTIONS (6)
  - Neutropenia [Unknown]
  - Malignant neoplasm progression [Unknown]
  - Palmar-plantar erythrodysaesthesia syndrome [Unknown]
  - Skin toxicity [Unknown]
  - Mucosal inflammation [Unknown]
  - Weight increased [Unknown]

NARRATIVE: CASE EVENT DATE: 2017
